FAERS Safety Report 6663992-6 (Version None)
Quarter: 2010Q2

REPORT INFORMATION
  Report Type: 
  Country: None (occurrence: None)
  Receive Date: 20100401
  Receipt Date: 20100324
  Transmission Date: 20101027
  Serious: Yes (Other)
  Sender: FDA-Public Use
  Company Number: JP-PFIZER INC-2010038704

PATIENT
  Age: 4 Year
  Sex: Male

DRUGS (4)
  1. DALACIN [Suspect]
     Indication: PNEUMONIA
     Dosage: 450 MG, 1X/DAY
     Route: 042
     Dates: start: 20080621, end: 20080624
  2. GALENIC /PANIPENEM/BETAMIPRON/ [Concomitant]
     Dosage: UNK
     Dates: start: 20080621, end: 20080624
  3. CEFDITOREN PIVOXIL [Concomitant]
  4. PIPERACILLIN [Concomitant]

REACTIONS (2)
  - DIARRHOEA [None]
  - DYSKINESIA [None]
